FAERS Safety Report 6278532-3 (Version None)
Quarter: 2009Q3

REPORT INFORMATION
  Report Type: 
  Country: None (occurrence: None)
  Receive Date: 20090722
  Receipt Date: 20080708
  Transmission Date: 20100115
  Serious: No
  Sender: FDA-Public Use
  Company Number: US-BAUSCH-2008BL002994

PATIENT
  Age: 40 Year
  Sex: Female
  Weight: 72 kg

DRUGS (1)
  1. OPCON-A [Suspect]
     Indication: EYE PRURITUS
     Route: 047
     Dates: start: 20080708, end: 20080708

REACTIONS (6)
  - DIZZINESS [None]
  - HEADACHE [None]
  - MYDRIASIS [None]
  - NAUSEA [None]
  - VERTIGO [None]
  - VISION BLURRED [None]
